FAERS Safety Report 4554849-5 (Version None)
Quarter: 2005Q1

REPORT INFORMATION
  Report Type: 
  Country: None (occurrence: None)
  Receive Date: 20041228
  Receipt Date: 20041103
  Transmission Date: 20050727
  Serious: No
  Sender: FDA-Public Use
  Company Number: IND-AE-04-SAN-012

PATIENT
  Age: 71 Year
  Sex: Male
  Weight: 78.0187 kg

DRUGS (14)
  1. SANCTURA [Suspect]
     Indication: HYPERTONIC BLADDER
     Dosage: 20 MG, BID, ORAL
     Route: 048
     Dates: start: 20041019, end: 20041030
  2. TOPROL-XL [Concomitant]
  3. TRENTAL [Concomitant]
  4. DIOVAN [Concomitant]
  5. NORVASC [Concomitant]
  6. GLIPIZIDE [Concomitant]
  7. ZOCOR [Concomitant]
  8. IMDUR [Concomitant]
  9. SYNTHROID [Concomitant]
  10. GABAPENTIN [Concomitant]
  11. NEXIUM [Concomitant]
  12. METFORMIN HCL [Concomitant]
  13. HYDROCHLOROTHIAZIDE [Concomitant]
  14. PROSCAR [Concomitant]

REACTIONS (2)
  - AMBLYOPIA [None]
  - DRY EYE [None]
